FAERS Safety Report 6921589-4 (Version None)
Quarter: 2010Q3

REPORT INFORMATION
  Report Type: 
  Country: None (occurrence: None)
  Receive Date: 20100812
  Receipt Date: 20100805
  Transmission Date: 20110219
  Serious: Yes (Hospitalization, Disabling, Other)
  Sender: FDA-Public Use
  Company Number: US-RB-008391-10

PATIENT
  Sex: Male

DRUGS (1)
  1. SUBOXONE [Suspect]
     Indication: PAIN
     Route: 060
     Dates: start: 20050101

REACTIONS (5)
  - APHASIA [None]
  - BACK PAIN [None]
  - CEREBROVASCULAR ACCIDENT [None]
  - COGNITIVE DISORDER [None]
  - COMA [None]
